FAERS Safety Report 14683752 (Version 1)
Quarter: 2018Q1

REPORT INFORMATION
  Report Type: Spontaneous
  Country: GB (occurrence: GB)
  Receive Date: 20180327
  Receipt Date: 20180327
  Transmission Date: 20180509
  Serious: Yes (Life-Threatening, Other)
  Sender: FDA-Public Use
  Company Number: GB-ACCORD-064806

PATIENT
  Age: 46 Year
  Sex: Male

DRUGS (6)
  1. DOXORUBICIN [Suspect]
     Active Substance: DOXORUBICIN
     Indication: CASTLEMAN^S DISEASE
  2. RITUXIMAB. [Suspect]
     Active Substance: RITUXIMAB
     Indication: CASTLEMAN^S DISEASE
  3. VINCRISTINE [Suspect]
     Active Substance: VINCRISTINE
     Indication: CASTLEMAN^S DISEASE
  4. MYCOPHENOLIC ACID. [Suspect]
     Active Substance: MYCOPHENOLIC ACID
     Indication: PARANEOPLASTIC PEMPHIGUS
     Dosage: UP TO 1.5 G/DAY
  5. CYCLOPHOSPHAMIDE/CYCLOPHOSPHAMIDE MONOHYDRATE [Suspect]
     Active Substance: CYCLOPHOSPHAMIDE
     Indication: CASTLEMAN^S DISEASE
  6. PREDNISOLONE. [Suspect]
     Active Substance: PREDNISOLONE
     Indication: CASTLEMAN^S DISEASE

REACTIONS (3)
  - Sepsis [Unknown]
  - Off label use [Unknown]
  - Drug ineffective [Unknown]
